FAERS Safety Report 7756576-X (Version None)
Quarter: 2011Q3

REPORT INFORMATION
  Report Type: 
  Country: None (occurrence: None)
  Receive Date: 20110916
  Receipt Date: 20110905
  Transmission Date: 20111222
  Serious: Yes (Other)
  Sender: FDA-Public Use
  Company Number: PHHY2011US79794

PATIENT
  Age: 46 Year
  Sex: Male

DRUGS (4)
  1. CYCLOSPORINE [Suspect]
     Dosage: 300 TO 350 MG PER DAY
     Route: 048
  2. MYCOPHENOLATE MOFETIL [Suspect]
     Dosage: 2 G PER DAY
  3. PREDNISONE [Concomitant]
     Dosage: 5 MG PER DAY
  4. BEXAROTENE [Concomitant]
     Dosage: 225 MG PER DAY

REACTIONS (10)
  - MYCOSIS FUNGOIDES [None]
  - ECZEMA [None]
  - EPSTEIN-BARR VIRUS TEST POSITIVE [None]
  - HYPERTRIGLYCERIDAEMIA [None]
  - PRURITUS [None]
  - ERYTHEMA [None]
  - SKIN LESION [None]
  - FURUNCLE [None]
  - RENAL IMPAIRMENT [None]
  - EPSTEIN-BARR VIRUS ASSOCIATED LYMPHOPROLIFERATIVE DISORDER [None]
